FAERS Safety Report 7645547-X (Version None)
Quarter: 2011Q3

REPORT INFORMATION
  Report Type: 
  Country: None (occurrence: None)
  Receive Date: 20110729
  Receipt Date: 20110722
  Transmission Date: 20111222
  Serious: Yes (Death, Other)
  Sender: FDA-Public Use
  Company Number: JP-CELGENEUS-087-50794-11073206

PATIENT
  Sex: Male

DRUGS (9)
  1. DIFLUCAN [Concomitant]
     Route: 065
     Dates: start: 20110224, end: 20110602
  2. ADONA [Concomitant]
     Route: 065
     Dates: start: 20110503, end: 20110516
  3. VIDAZA [Suspect]
     Dosage: 75 MILLIGRAM/SQ. METER
     Route: 041
     Dates: start: 20110427, end: 20110503
  4. MEROPENEM [Concomitant]
     Route: 065
     Dates: start: 20110506, end: 20110511
  5. GLAKAY [Concomitant]
     Route: 065
     Dates: end: 20110602
  6. MUCOSTA [Concomitant]
     Route: 065
     Dates: start: 20110105, end: 20110602
  7. ROCALTROL [Concomitant]
     Route: 065
     Dates: start: 20110515, end: 20110602
  8. PROTECADIN [Concomitant]
     Route: 065
     Dates: start: 20110105, end: 20110602
  9. TRANSAMIN [Concomitant]
     Route: 065
     Dates: start: 20110503, end: 20110516

REACTIONS (1)
  - DISSEMINATED INTRAVASCULAR COAGULATION [None]
